FAERS Safety Report 9767117 (Version 1)
Quarter: 2013Q4

REPORT INFORMATION
  Report Type: Spontaneous
  Country: US (occurrence: US)
  Receive Date: 20131217
  Receipt Date: 20131217
  Transmission Date: 20140711
  Serious: No
  Sender: FDA-Public Use
  Company Number: US-GLAXOSMITHKLINE-A1040135A

PATIENT
  Age: 64 Year
  Sex: Female

DRUGS (11)
  1. VOTRIENT [Suspect]
     Indication: LEIOMYOSARCOMA
     Dosage: 800MG PER DAY
     Route: 048
     Dates: start: 20130816
  2. CALCIUM + MAGNESIUM + ZINC [Concomitant]
  3. COMPAZINE [Concomitant]
  4. COQ10 [Concomitant]
  5. IMODIUM AD [Concomitant]
  6. LEVOTHYROXINE [Concomitant]
     Dosage: 100MCG PER DAY
     Route: 048
  7. LOSARTAN [Concomitant]
     Dosage: 50MGD PER DAY
  8. MVI [Concomitant]
     Dosage: 1TAB PER DAY
  9. B COMPLEX [Concomitant]
  10. VITAMIN C [Concomitant]
  11. ZOFRAN [Concomitant]

REACTIONS (1)
  - Hyperkalaemia [Unknown]
